FAERS Safety Report 4940672-6 (Version None)
Quarter: 2006Q1

REPORT INFORMATION
  Report Type: 
  Country: None (occurrence: None)
  Receive Date: 20060127
  Receipt Date: 20051023
  Transmission Date: 20060701
  Serious: Yes (Other)
  Sender: FDA-Public Use
  Company Number: 2005145697

PATIENT
  Age: 77 Year
  Sex: Male
  Weight: 57.1532 kg

DRUGS (4)
  1. LYRICA [Suspect]
     Indication: PAIN
     Dosage: 150 MG (50 MG,3 IN 1 D),ORAL
     Route: 048
     Dates: start: 20051021
  2. CIPROFLOXACIN [Concomitant]
  3. IMMUNOGLOBULIN G HUMAN (IMMUNOGLOBULIN G HUMAN) [Concomitant]
  4. AREDIA [Concomitant]

REACTIONS (1)
  - HAEMATURIA [None]
